FAERS Safety Report 5541817-X (Version None)
Quarter: 2007Q4

REPORT INFORMATION
  Report Type: 
  Country: None (occurrence: None)
  Receive Date: 20071210
  Receipt Date: 20071204
  Transmission Date: 20080405
  Serious: Yes (Other)
  Sender: FDA-Public Use
  Company Number: DE-JNJFOC-20071105824

PATIENT
  Sex: Female
  Weight: 80 kg

DRUGS (2)
  1. RISPERDAL [Suspect]
     Indication: PSYCHOTIC DISORDER
     Route: 048
  2. TREVILOR [Concomitant]
     Route: 048

REACTIONS (4)
  - AUTOIMMUNE THYROIDITIS [None]
  - HYPERPROLACTINAEMIA [None]
  - OVARIAN CYST [None]
  - PROLACTINOMA [None]
